FAERS Safety Report 8553966-2 (Version None)
Quarter: 2012Q3

REPORT INFORMATION
  Report Type: 
  Country: None (occurrence: None)
  Receive Date: 20120731
  Receipt Date: 20120726
  Transmission Date: 20120928
  Serious: Yes (Other)
  Sender: FDA-Public Use
  Company Number: US-PFIZER INC-2012182040

PATIENT
  Sex: Female

DRUGS (3)
  1. NEURONTIN [Suspect]
     Dosage: 300 MG, (2 TABS DAILY)
  2. MYCOPHENOLATE MOFETIL [Concomitant]
     Dosage: UNK
  3. PYRIDOSTIGMINE [Concomitant]
     Dosage: UNK

REACTIONS (3)
  - MUSCULAR WEAKNESS [None]
  - IMPAIRED WORK ABILITY [None]
  - DIPLOPIA [None]
